FAERS Safety Report 7927648-1 (Version None)
Quarter: 2011Q4

REPORT INFORMATION
  Report Type: 
  Country: None (occurrence: None)
  Receive Date: 20111118
  Receipt Date: 20111114
  Transmission Date: 20120403
  Serious: Yes (Other)
  Sender: FDA-Public Use
  Company Number: US-SANOFI-AVENTIS-2011SA075121

PATIENT
  Sex: Male

DRUGS (3)
  1. NOVOLOG [Concomitant]
  2. LANTUS [Suspect]
     Route: 058
  3. SOLOSTAR [Suspect]

REACTIONS (2)
  - CEREBROVASCULAR ACCIDENT [None]
  - VISUAL IMPAIRMENT [None]
